FAERS Safety Report 24843767 (Version 2)
Quarter: 2025Q1

REPORT INFORMATION
  Report Type: Spontaneous
  Country: MX (occurrence: MX)
  Receive Date: 20250115
  Receipt Date: 20250116
  Transmission Date: 20250409
  Serious: Yes (Other)
  Sender: ROCHE
  Company Number: MX-ROCHE-10000177721

PATIENT
  Age: 40 Year
  Sex: Male
  Weight: 90 kg

DRUGS (3)
  1. RITUXIMAB [Suspect]
     Active Substance: RITUXIMAB
     Indication: Multiple sclerosis
     Dosage: DOSE WAS NOT REPORTED
     Route: 042
     Dates: start: 2020, end: 202405
  2. LEVETIRACETAM [Concomitant]
     Active Substance: LEVETIRACETAM
     Indication: Product used for unknown indication
  3. GABAPENTIN [Concomitant]
     Active Substance: GABAPENTIN
     Indication: Pain
     Dosage: 1 TABLET IN THE MORNING AND IN THE EVENING

REACTIONS (3)
  - Off label use [Unknown]
  - Noninfective encephalitis [Not Recovered/Not Resolved]
  - Epilepsy [Not Recovered/Not Resolved]

NARRATIVE: CASE EVENT DATE: 20200101
